FAERS Safety Report 4879228-2 (Version None)
Quarter: 2006Q1

REPORT INFORMATION
  Report Type: 
  Country: None (occurrence: None)
  Receive Date: 20060112
  Receipt Date: 20060104
  Transmission Date: 20060701
  Serious: Yes (Life-Threatening, Hospitalization)
  Sender: FDA-Public Use
  Company Number: JP-ABBOTT-06P-087-0321222-00

PATIENT
  Sex: Male

DRUGS (21)
  1. KALETRA [Suspect]
     Indication: ACQUIRED IMMUNODEFICIENCY SYNDROME
     Route: 048
     Dates: start: 20031127, end: 20031223
  2. KALETRA [Suspect]
     Dates: start: 20040210, end: 20040216
  3. NORVIR [Suspect]
     Indication: HIV INFECTION
     Route: 048
     Dates: start: 20040706, end: 20040722
  4. LAMIVUDINE [Suspect]
     Indication: HIV INFECTION
     Route: 048
     Dates: start: 20031127, end: 20031223
  5. LAMIVUDINE [Suspect]
     Dates: start: 20040210, end: 20040224
  6. LAMIVUDINE [Suspect]
     Dates: end: 20040722
  7. LAMIVUDINE [Suspect]
     Dates: start: 20041111
  8. ABACAVIR SULFATE [Suspect]
     Indication: HIV INFECTION
     Route: 048
     Dates: start: 20031127, end: 20031223
  9. ABACAVIR SULFATE [Suspect]
     Dates: start: 20040210, end: 20040224
  10. ABACAVIR SULFATE [Suspect]
     Dates: end: 20040722
  11. ATAZANAVIR [Suspect]
     Indication: HIV INFECTION
     Route: 048
     Dates: start: 20040706
  12. TENOFOVIR [Suspect]
     Indication: HIV INFECTION
     Dates: start: 20040706
  13. TENOFOVIR [Suspect]
     Dates: start: 20041111
  14. VALGANCICLOVIR HYDROCHLORIDE [Concomitant]
     Indication: DRUG USE FOR UNKNOWN INDICATION
     Dates: start: 20041222, end: 20050202
  15. CLARITHROMYCIN [Concomitant]
     Indication: DRUG USE FOR UNKNOWN INDICATION
     Dates: start: 20041013, end: 20041202
  16. BACTRIM [Concomitant]
     Indication: PROPHYLAXIS
     Dates: start: 20040225
  17. TACROLIMUS [Concomitant]
     Indication: DRUG USE FOR UNKNOWN INDICATION
     Dates: start: 20040227, end: 20040506
  18. CYCLOSPORINE [Concomitant]
     Indication: PROPHYLAXIS AGAINST TRANSPLANT REJECTION
     Dates: start: 20040507, end: 20041103
  19. ETHAMBUTOL HCL [Concomitant]
     Indication: DRUG USE FOR UNKNOWN INDICATION
     Dates: start: 20041013, end: 20041202
  20. AZITHROMYCIN [Concomitant]
     Indication: DRUG USE FOR UNKNOWN INDICATION
     Dates: start: 20040922, end: 20041012
  21. INTERFERON [Concomitant]
     Indication: HEPATITIS C
     Dates: start: 20041119, end: 20050331

REACTIONS (6)
  - HEADACHE [None]
  - JAUNDICE [None]
  - LIVER DISORDER [None]
  - ORAL CANDIDIASIS [None]
  - SUBDURAL HAEMATOMA [None]
  - VOMITING [None]
